FAERS Safety Report 11795788 (Version 3)
Quarter: 2016Q1

REPORT INFORMATION
  Report Type: Report from Study
  Country: NL (occurrence: NL)
  Receive Date: 20151202
  Receipt Date: 20160108
  Transmission Date: 20160525
  Serious: Yes (Death, Hospitalization)
  Sender: FDA-Public Use
  Company Number: PHHO2015NL019962

PATIENT
  Age: 51 Year
  Sex: Male

DRUGS (7)
  1. OXYCODON [Concomitant]
     Active Substance: OXYCODONE
     Dosage: 140 MG, QD
     Route: 065
     Dates: start: 20151121
  2. TRAMETINIB [Suspect]
     Active Substance: TRAMETINIB
     Indication: APPENDIX CANCER
     Dosage: 1.5 MG, QD (28 DAYS)
     Route: 048
     Dates: start: 20151124, end: 20151130
  3. OXYCODON [Concomitant]
     Active Substance: OXYCODONE
     Indication: PRODUCT USED FOR UNKNOWN INDICATION
     Dosage: 120 MG, QD
     Route: 065
     Dates: start: 20151007, end: 20151120
  4. METOCLOPRAMIDE. [Concomitant]
     Active Substance: METOCLOPRAMIDE
     Indication: PRODUCT USED FOR UNKNOWN INDICATION
     Dosage: 30 MG, QD
     Route: 065
     Dates: start: 20151121
  5. MORFIN [Concomitant]
     Active Substance: MORPHINE SULFATE
     Indication: PRODUCT USED FOR UNKNOWN INDICATION
     Dosage: 30 MG, QD
     Route: 042
     Dates: start: 20151122
  6. OXAZEPAM. [Concomitant]
     Active Substance: OXAZEPAM
     Indication: PRODUCT USED FOR UNKNOWN INDICATION
     Dosage: 20 MG, UNK
     Route: 065
     Dates: start: 20151007
  7. TYKERB [Suspect]
     Active Substance: LAPATINIB DITOSYLATE
     Indication: APPENDIX CANCER
     Dosage: 750 MG, QD (5 DAYS ON 2 DAYS OFF)
     Route: 048
     Dates: start: 20151124, end: 20151130

REACTIONS (3)
  - Vomiting [Not Recovered/Not Resolved]
  - Disease progression [Fatal]
  - Abdominal pain upper [Not Recovered/Not Resolved]

NARRATIVE: CASE EVENT DATE: 20151120
